FAERS Safety Report 12219596 (Version 1)
Quarter: 2016Q1

REPORT INFORMATION
  Report Type: Spontaneous
  Country: GB (occurrence: GB)
  Receive Date: 20160329
  Receipt Date: 20160329
  Transmission Date: 20160526
  Serious: Yes (Other)
  Sender: FDA-Public Use
  Company Number: PHHY2016GB038819

PATIENT
  Age: 49 Year
  Sex: Female
  Weight: 60.32 kg

DRUGS (2)
  1. AMOXICILLIN. [Concomitant]
     Active Substance: AMOXICILLIN
     Indication: ABSCESS
     Route: 065
  2. CLARITHROMYCIN SANDOZ [Suspect]
     Active Substance: CLARITHROMYCIN
     Indication: ABSCESS
     Dosage: 500 MG, BID
     Route: 048
     Dates: start: 20160308

REACTIONS (16)
  - Abdominal rigidity [Unknown]
  - Fatigue [Unknown]
  - Ageusia [Unknown]
  - Constipation [Unknown]
  - Vomiting [Unknown]
  - Anorectal discomfort [Unknown]
  - Diarrhoea [Unknown]
  - Insomnia [Unknown]
  - Asthenia [Unknown]
  - Arthralgia [Unknown]
  - Anosmia [Unknown]
  - Decreased appetite [Unknown]
  - Nausea [Unknown]
  - Faeces discoloured [Unknown]
  - Abdominal pain lower [Unknown]
  - Somnolence [Unknown]

NARRATIVE: CASE EVENT DATE: 201603
